FAERS Safety Report 8338366-2 (Version None)
Quarter: 2012Q1

REPORT INFORMATION
  Report Type: 
  Country: None (occurrence: None)
  Receive Date: 20120329
  Receipt Date: 20081020
  Transmission Date: 20120608
  Serious: Yes (Disabling)
  Sender: FDA-Public Use
  Company Number: PHEH2008US02262

PATIENT
  Age: 80 Year
  Sex: Male
  Weight: 88.4 kg

DRUGS (14)
  1. NORVASC [Concomitant]
  2. FINASTERIDE [Concomitant]
  3. LIPITOR [Concomitant]
  4. INSULIN LISPRO (INSULIN LISPRO) [Concomitant]
  5. LAMISIL [Suspect]
     Indication: ONYCHOMYCOSIS
     Dosage: 250 MG, QD, ORAL
     Route: 048
     Dates: start: 20071001, end: 20080101
  6. LAMISIL [Suspect]
     Indication: TRICHOPHYTOSIS
     Dosage: 250 MG, QD, ORAL
     Route: 048
     Dates: start: 20071001, end: 20080101
  7. HYDROCHLOROTHIAZIDE [Concomitant]
  8. CASODEX [Concomitant]
  9. AVAPRO [Concomitant]
  10. LASIX [Concomitant]
  11. HUMALOG [Concomitant]
  12. JANUVIA [Suspect]
     Indication: ONYCHOMYCOSIS
     Dates: start: 20080101
  13. ASPIRIN [Concomitant]
  14. LISINOPRIL [Concomitant]

REACTIONS (2)
  - BLOOD GLUCOSE INCREASED [None]
  - DYSGEUSIA [None]
